FAERS Safety Report 13694947 (Version 1)
Quarter: 2017Q2

REPORT INFORMATION
  Report Type: Spontaneous
  Country: US (occurrence: US)
  Receive Date: 20170627
  Receipt Date: 20170627
  Transmission Date: 20170830
  Serious: No
  Sender: FDA-Public Use
  Company Number: GXBR2017US001682

PATIENT

DRUGS (1)
  1. TOBRAMYCIN. [Suspect]
     Active Substance: TOBRAMYCIN
     Indication: EYE DISORDER
     Dosage: UNK DF, UNK
     Route: 065
     Dates: start: 201605, end: 201605

REACTIONS (2)
  - Eye inflammation [Unknown]
  - Eye swelling [Unknown]

NARRATIVE: CASE EVENT DATE: 201605
